FAERS Safety Report 15607976 (Version 3)
Quarter: 2019Q1

REPORT INFORMATION
  Report Type: Report from Study
  Country: CA (occurrence: CA)
  Receive Date: 20181112
  Receipt Date: 20190315
  Transmission Date: 20190417
  Serious: Yes (Other)
  Sender: FDA-Public Use
  Company Number: CA-JNJFOC-20180515571

PATIENT
  Age: 57 Year
  Sex: Male
  Weight: 103 kg

DRUGS (9)
  1. CELEBREX [Concomitant]
     Active Substance: CELECOXIB
     Route: 048
  2. VITAMIN D3 [Concomitant]
     Active Substance: CHOLECALCIFEROL
     Route: 048
  3. REMICADE [Suspect]
     Active Substance: INFLIXIMAB
     Indication: ANKYLOSING SPONDYLITIS
     Route: 042
     Dates: start: 20070103
  4. REMICADE [Suspect]
     Active Substance: INFLIXIMAB
     Indication: ANKYLOSING SPONDYLITIS
     Route: 042
  5. SYNTHROID [Concomitant]
     Active Substance: LEVOTHYROXINE SODIUM
     Route: 048
  6. REMICADE [Suspect]
     Active Substance: INFLIXIMAB
     Indication: ANKYLOSING SPONDYLITIS
     Route: 042
     Dates: start: 20070301
  7. PHENOBARBITAL SODIUM. [Concomitant]
     Active Substance: PHENOBARBITAL SODIUM
     Route: 048
  8. DISULFIRAM. [Concomitant]
     Active Substance: DISULFIRAM
     Route: 048
  9. CELEBREX [Concomitant]
     Active Substance: CELECOXIB
     Route: 048

REACTIONS (9)
  - Tooth abscess [Recovering/Resolving]
  - Gout [Recovered/Resolved]
  - Post procedural infection [Unknown]
  - Off label use [Unknown]
  - Root canal infection [Recovering/Resolving]
  - Infusion related reaction [Recovered/Resolved]
  - Thyroidectomy [Unknown]
  - Incorrect dose administered [Unknown]
  - Gingivitis [Recovering/Resolving]

NARRATIVE: CASE EVENT DATE: 2013
